FAERS Safety Report 7581187-9 (Version None)
Quarter: 2011Q2

REPORT INFORMATION
  Report Type: 
  Country: None (occurrence: None)
  Receive Date: 20110629
  Receipt Date: 20110620
  Transmission Date: 20111010
  Serious: Yes (Other)
  Sender: FDA-Public Use
  Company Number: BE-UCBSA-031328

PATIENT
  Age: 54 Year
  Sex: Male

DRUGS (1)
  1. LACOSAMIDE [Suspect]
     Indication: CONVULSION
     Route: 042

REACTIONS (1)
  - CONVULSION [None]
